APPROVED DRUG PRODUCT: GABLOFEN
Active Ingredient: BACLOFEN
Strength: 2MG/ML
Dosage Form/Route: INJECTABLE;INTRATHECAL
Application: N022462 | Product #003 | TE Code: AP
Applicant: PIRAMAL CRITICAL CARE INC
Approved: Nov 19, 2010 | RLD: Yes | RS: Yes | Type: RX